FAERS Safety Report 11130792 (Version 1)
Quarter: 2015Q2

REPORT INFORMATION
  Report Type: Other
  Country: US (occurrence: US)
  Receive Date: 20150522
  Receipt Date: 20150522
  Transmission Date: 20150821
  Serious: Yes (Other)
  Sender: FDA-Public Use
  Company Number: US-SHIRE-US201504399

PATIENT
  Sex: Female
  Weight: 73.16 kg

DRUGS (6)
  1. PENTASA [Suspect]
     Active Substance: MESALAMINE
     Dosage: 500 MG, UNKNOWN (4 PER DAY AS PRESCRIBED)
     Route: 048
     Dates: end: 20150512
  2. MULTIVITAMIN                       /07504101/ [Concomitant]
     Active Substance: VITAMINS
     Indication: PRODUCT USED FOR UNKNOWN INDICATION
     Dosage: UNK, 1X/DAY:QD
     Route: 065
  3. VIACTIV                            /00751501/ [Concomitant]
     Indication: PRODUCT USED FOR UNKNOWN INDICATION
     Dosage: UNK, UNKNOWN
     Route: 065
  4. ASPIRIN                            /00002701/ [Concomitant]
     Active Substance: ASPIRIN
     Indication: PRODUCT USED FOR UNKNOWN INDICATION
     Dosage: UNK, OTHER (MONDAY, WEDNESDAY, FRIDAY)
     Route: 065
  5. ESTRADIOL. [Concomitant]
     Active Substance: ESTRADIOL
     Indication: PRODUCT USED FOR UNKNOWN INDICATION
     Dosage: 1 MG, 1X/DAY:QD
     Route: 065
  6. PENTASA [Suspect]
     Active Substance: MESALAMINE
     Indication: PRODUCT USED FOR UNKNOWN INDICATION
     Dosage: 500 MG, UNKNOWN (3 PER DAY)
     Route: 048
     Dates: end: 20150512

REACTIONS (8)
  - Ocular hyperaemia [Unknown]
  - Genital rash [Unknown]
  - Haematochezia [Unknown]
  - Blister [Unknown]
  - Incorrect dose administered [Recovered/Resolved]
  - Feeling hot [Unknown]
  - Vomiting [Unknown]
  - Muscle spasms [Unknown]
